FAERS Safety Report 10149815 (Version 2)
Quarter: 2014Q2

REPORT INFORMATION
  Report Type: Spontaneous
  Country: US (occurrence: US)
  Receive Date: 20140502
  Receipt Date: 20140502
  Transmission Date: 20141212
  Serious: Yes (Other)
  Sender: FDA-Public Use
  Company Number: US-AMGEN-USASP2014026789

PATIENT
  Age: 57 Year
  Sex: Female
  Weight: 107.94 kg

DRUGS (3)
  1. ENBREL [Suspect]
     Indication: RHEUMATOID ARTHRITIS
     Dosage: 50 MG, QWK
     Route: 065
     Dates: start: 20140403
  2. LANSOPRAZOLE [Concomitant]
     Dosage: 30 MG, QD
  3. ASPIRIN [Concomitant]
     Dosage: 500 MG TID WITH ADDITIONAL 500 MG QHS PRN

REACTIONS (13)
  - Rheumatoid arthritis [Unknown]
  - Drug hypersensitivity [Unknown]
  - Pyrexia [Recovering/Resolving]
  - Drug effect decreased [Unknown]
  - Headache [Unknown]
  - Sinus congestion [Unknown]
  - Hepatic steatosis [Recovering/Resolving]
  - Thrombocytopenia [Recovering/Resolving]
  - Injection site reaction [Recovering/Resolving]
  - Injection site pain [Not Recovered/Not Resolved]
  - Injection site haemorrhage [Not Recovered/Not Resolved]
  - Injection site erythema [Recovering/Resolving]
  - Injection site warmth [Not Recovered/Not Resolved]
